FAERS Safety Report 12877628 (Version 1)
Quarter: 2016Q4

REPORT INFORMATION
  Report Type: Spontaneous
  Country: US (occurrence: US)
  Receive Date: 20161024
  Receipt Date: 20161024
  Transmission Date: 20170207
  Serious: No
  Sender: FDA-Public Use
  Company Number: PHEH2016US027466

PATIENT
  Sex: Female

DRUGS (1)
  1. COSENTYX [Suspect]
     Active Substance: SECUKINUMAB
     Indication: BLYS POLYMORPHISM
     Dosage: 300 MG, QMO
     Route: 065

REACTIONS (2)
  - Product use issue [Unknown]
  - Therapy non-responder [Not Recovered/Not Resolved]
